FAERS Safety Report 5262890-2 (Version None)
Quarter: 2007Q1

REPORT INFORMATION
  Report Type: 
  Country: None (occurrence: None)
  Receive Date: 20070308
  Receipt Date: 20060606
  Transmission Date: 20070707
  Serious: Yes (Other)
  Sender: FDA-Public Use
  Company Number: 6030188

PATIENT
  Age: 19 Year
  Sex: Female

DRUGS (2)
  1. FLUOXETINE [Suspect]
     Indication: DEPRESSION
     Dosage: 20 MG (20 MG, 1 IN 1 D) ORAL
     Route: 048
     Dates: start: 19990601
  2. BUSPIRONE HCL [Concomitant]

REACTIONS (2)
  - BREAST CANCER IN SITU [None]
  - FIBROADENOMA OF BREAST [None]
